FAERS Safety Report 6436576-2 (Version None)
Quarter: 2009Q4

REPORT INFORMATION
  Report Type: 
  Country: None (occurrence: None)
  Receive Date: 20091111
  Receipt Date: 20091030
  Transmission Date: 20100525
  Serious: Yes (Hospitalization, Other)
  Sender: FDA-Public Use
  Company Number: US-ELI_LILLY_AND_COMPANY-US200911000015

PATIENT
  Sex: Female

DRUGS (20)
  1. FORTEO [Suspect]
     Dates: start: 20071001, end: 20091001
  2. OXYCODONE HCL [Concomitant]
     Dosage: 10/325, 1/2 TAB QID
  3. ACIPHEX [Concomitant]
     Dosage: UNK, DAILY (1/D)
  4. DAYPRO [Concomitant]
     Dosage: 600 MG, 2/D
  5. POTASSIUM CHLORIDE [Concomitant]
  6. HYDROCHLOROTHIAZIDE [Concomitant]
  7. LASIX [Concomitant]
  8. CYMBALTA [Concomitant]
  9. CYCLOBENZAPRINE HCL [Concomitant]
  10. ZOCOR [Concomitant]
  11. ASPIRIN [Concomitant]
  12. MIRAPEX [Concomitant]
     Dosage: 0.125 MG, UNK
  13. VITAMIN E /001105/ [Concomitant]
  14. ASCORBIC ACID [Concomitant]
  15. LOVAZA [Concomitant]
  16. LECITHIN [Concomitant]
  17. MULTI-VITAMIN [Concomitant]
  18. CHONDROITIN W/GLUCOSAMINE [Concomitant]
  19. BLOOD TRANSFUSION, AUXILIARY PRODUCTS [Concomitant]
     Route: 042
     Dates: start: 20081101, end: 20081101
  20. BLOOD TRANSFUSION, AUXILIARY PRODUCTS [Concomitant]
     Route: 042
     Dates: start: 20090201, end: 20090201

REACTIONS (5)
  - ARTHRITIS [None]
  - FALL [None]
  - GAIT DISTURBANCE [None]
  - HIP SURGERY [None]
  - LOWER LIMB FRACTURE [None]
